FAERS Safety Report 20536453 (Version 1)
Quarter: 2022Q1

REPORT INFORMATION
  Report Type: Spontaneous
  Country: CA (occurrence: CA)
  Receive Date: 20220302
  Receipt Date: 20220302
  Transmission Date: 20220424
  Serious: Yes (Hospitalization)
  Sender: FDA-Public Use
  Company Number: CA-JNJFOC-20210838471

PATIENT
  Age: 72 Year
  Sex: Male

DRUGS (2)
  1. INFLIXIMAB [Suspect]
     Active Substance: INFLIXIMAB
     Indication: Crohn^s disease
     Route: 042
  2. HYDROCORTISONE [Concomitant]
     Active Substance: HYDROCORTISONE
     Indication: Premedication
     Route: 042

REACTIONS (7)
  - Respiratory rate increased [Recovered/Resolved]
  - Fall [Recovered/Resolved]
  - Back pain [Recovered/Resolved]
  - Blood pressure fluctuation [Recovered/Resolved]
  - Blood pressure increased [Recovered/Resolved]
  - Off label use [Recovered/Resolved]
  - Intentional product use issue [Recovered/Resolved]
